FAERS Safety Report 11903072 (Version 1)
Quarter: 2016Q1

REPORT INFORMATION
  Report Type: Report from Study
  Country: US (occurrence: US)
  Receive Date: 20160108
  Receipt Date: 20160108
  Transmission Date: 20160526
  Serious: No
  Sender: FDA-Public Use
  Company Number: US-ABBVIE-15P-163-1519563-00

PATIENT
  Age: 64 Year
  Sex: Male

DRUGS (3)
  1. VIEKIRA PAK [Suspect]
     Active Substance: DASABUVIR\OMBITASVIR\PARITAPREVIR\RITONAVIR
     Indication: CHRONIC HEPATITIS C
     Route: 048
     Dates: start: 20150716
  2. RIBAVIRIN. [Suspect]
     Active Substance: RIBAVIRIN
     Indication: CHRONIC HEPATITIS C
     Route: 048
     Dates: start: 20150716, end: 20150813
  3. RIBAVIRIN. [Suspect]
     Active Substance: RIBAVIRIN
     Route: 048
     Dates: start: 20150814

REACTIONS (11)
  - Tachycardia [Unknown]
  - Hepatic encephalopathy [Unknown]
  - Confusional state [Unknown]
  - Diarrhoea [Unknown]
  - Influenza like illness [Unknown]
  - Memory impairment [Unknown]
  - Insomnia [Unknown]
  - Dyspnoea [Unknown]
  - Muscle spasms [Unknown]
  - Pruritus [Unknown]
  - Hyperglycaemia [Unknown]
